FAERS Safety Report 6257465-2 (Version None)
Quarter: 2009Q2

REPORT INFORMATION
  Report Type: 
  Country: None (occurrence: None)
  Receive Date: 20090630
  Receipt Date: 20090630
  Transmission Date: 20091009
  Serious: Yes (Other)
  Sender: FDA-Public Use
  Company Number: None

PATIENT
  Age: 46 Year
  Sex: Female
  Weight: 87.9978 kg

DRUGS (1)
  1. TETRACYCLINE [Suspect]
     Indication: ACNE
     Dosage: 1000 MG 2 OTHER
     Route: 050
     Dates: start: 20050101, end: 20090301

REACTIONS (3)
  - HEPATIC FUNCTION ABNORMAL [None]
  - HEPATOMEGALY [None]
  - ULTRASOUND LIVER ABNORMAL [None]
